FAERS Safety Report 9000943 (Version 1)
Quarter: 2012Q4

REPORT INFORMATION
  Report Type: Spontaneous
  Country: US (occurrence: None)
  Receive Date: 20121226
  Receipt Date: 20121226
  Transmission Date: 20130627
  Serious: Yes (Hospitalization)
  Sender: FDA-Public Use
  Company Number: 2012SP004912

PATIENT
  Age: 72 Year
  Sex: Male

DRUGS (7)
  1. FLUOROURACIL (FLUOROURACIL) [Suspect]
     Indication: COLON CANCER
     Dates: start: 20121105
  2. IRINOTECAN HCL [Suspect]
     Indication: COLON CANCER
     Dates: start: 20121105
  3. AVASTIN [Suspect]
     Indication: COLON CANCER
     Dates: start: 20121105
  4. ONDANSETRON [Concomitant]
  5. CALCIUM FOLINATE [Concomitant]
  6. ATROPINE [Concomitant]
  7. FORTECORTIN [Concomitant]

REACTIONS (4)
  - Muscular weakness [None]
  - Gait disturbance [None]
  - Fatigue [None]
  - Muscle twitching [None]
